FAERS Safety Report 5907080-2 (Version None)
Quarter: 2008Q4

REPORT INFORMATION
  Report Type: 
  Country: None (occurrence: None)
  Receive Date: 20081002
  Receipt Date: 20081002
  Transmission Date: 20090506
  Serious: Yes (Hospitalization)
  Sender: FDA-Public Use
  Company Number: None

PATIENT
  Sex: Male
  Weight: 85 kg

DRUGS (4)
  1. FLUOROURACIL [Suspect]
     Dosage: 14896 MG
     Dates: end: 20080915
  2. BEVACIZUMAB (RHUMAB VEGF) [Suspect]
     Dosage: 1197 MG
     Dates: end: 20080915
  3. LEUCOVORIN CALCIUM [Suspect]
     Dosage: 2280 MG
     Dates: end: 20080915
  4. ELOXATIN [Suspect]
     Dosage: 452 MG
     Dates: end: 20080915

REACTIONS (2)
  - ACUTE MYOCARDIAL INFARCTION [None]
  - MYOCARDIAL ISCHAEMIA [None]
